FAERS Safety Report 6400823-3 (Version None)
Quarter: 2009Q4

REPORT INFORMATION
  Report Type: 
  Country: None (occurrence: None)
  Receive Date: 20091009
  Receipt Date: 20090922
  Transmission Date: 20100525
  Serious: Yes (Hospitalization)
  Sender: FDA-Public Use
  Company Number: 2009AL006168

PATIENT
  Age: 79 Year
  Sex: Male

DRUGS (5)
  1. SERTRALINE HCL [Suspect]
     Indication: DEPRESSION
     Dosage: 100 MG; QD; UNK
  2. LOVASTATIN [Suspect]
     Dosage: UNKNOWN; UNK; UNK
  3. ALLOPURINOL [Concomitant]
  4. FELODIPINE [Concomitant]
  5. OMEPRAZOLE [Concomitant]

REACTIONS (13)
  - ABNORMAL BEHAVIOUR [None]
  - AGGRESSION [None]
  - CONFUSIONAL STATE [None]
  - DEPRESSED LEVEL OF CONSCIOUSNESS [None]
  - INCORRECT DOSE ADMINISTERED [None]
  - NUCLEAR MAGNETIC RESONANCE IMAGING ABNORMAL [None]
  - PERIODIC LIMB MOVEMENT DISORDER [None]
  - RAPID EYE MOVEMENTS SLEEP ABNORMAL [None]
  - RESTLESSNESS [None]
  - SLEEP DISORDER [None]
  - SLEEP INERTIA [None]
  - SNORING [None]
  - TREMOR [None]
